FAERS Safety Report 22394289 (Version 1)
Quarter: 2023Q2

REPORT INFORMATION
  Report Type: Spontaneous
  Country: US (occurrence: None)
  Receive Date: 20230601
  Receipt Date: 20230601
  Transmission Date: 20230722
  Serious: No
  Sender: FDA-Public Use
  Company Number: US-Merck Healthcare KGaA-9405369

PATIENT
  Sex: Female

DRUGS (1)
  1. REBIF [Suspect]
     Active Substance: INTERFERON BETA-1A
     Indication: Demyelination
     Dosage: REBIF 44 UG/ 0.5 ML?REBIF 44 MCG REBIDOSE AUTOINJECTOR
     Route: 058
     Dates: start: 202304

REACTIONS (3)
  - Insomnia [Unknown]
  - Hyperhidrosis [Unknown]
  - Off label use [Unknown]
